FAERS Safety Report 7487735-1 (Version None)
Quarter: 2011Q2

REPORT INFORMATION
  Report Type: 
  Country: None (occurrence: None)
  Receive Date: 20110518
  Receipt Date: 20110510
  Transmission Date: 20111010
  Serious: Yes (Other)
  Sender: FDA-Public Use
  Company Number: PHFR2011GB01449

PATIENT
  Sex: Male

DRUGS (2)
  1. CLOZARIL [Suspect]
     Dosage: 150 MG, QD
     Route: 048
     Dates: start: 20010701
  2. PAROXETINE HCL [Concomitant]
     Indication: DEPRESSION
     Dosage: UNK DF, UNK

REACTIONS (2)
  - THROMBOCYTOPENIA [None]
  - INTERSTITIAL LUNG DISEASE [None]
